FAERS Safety Report 6840648-8 (Version None)
Quarter: 2010Q3

REPORT INFORMATION
  Report Type: 
  Country: None (occurrence: None)
  Receive Date: 20100713
  Receipt Date: 20100713
  Transmission Date: 20110219
  Serious: No
  Sender: FDA-Public Use
  Company Number: None

PATIENT
  Age: 67 Year
  Sex: Female
  Weight: 86.1834 kg

DRUGS (1)
  1. OMEPRAZOLE [Suspect]
     Indication: GASTRIC ULCER HAEMORRHAGE
     Dosage: 1 CAPSULE DAILY PO
     Route: 048
     Dates: start: 20100420, end: 20100705

REACTIONS (4)
  - ABDOMINAL TENDERNESS [None]
  - HUNGER [None]
  - NAUSEA [None]
  - PRODUCT SUBSTITUTION ISSUE [None]
